FAERS Safety Report 5977289-0 (Version None)
Quarter: 2008Q4

REPORT INFORMATION
  Report Type: 
  Country: None (occurrence: None)
  Receive Date: 20081203
  Receipt Date: 20081120
  Transmission Date: 20090506
  Serious: Yes (Hospitalization, Other)
  Sender: FDA-Public Use
  Company Number: PHHY2008GB24563

PATIENT
  Sex: Male

DRUGS (6)
  1. CLOZARIL [Suspect]
     Indication: SCHIZOPHRENIA
     Dosage: UNK
     Dates: start: 20070815, end: 20081001
  2. SENNA [Concomitant]
     Indication: CONSTIPATION
     Dosage: 15 MG, DAILY
     Route: 048
  3. OMEPRAZOLE [Concomitant]
     Indication: DYSPEPSIA
     Dosage: 80 MG DAILY
     Route: 048
     Dates: start: 20080801
  4. VALPROATE SODIUM [Concomitant]
     Indication: DYSKINESIA
     Dosage: 1200 MG DAILY
     Dates: start: 20080905
  5. HYOSCINE HBR HYT [Concomitant]
     Dosage: 600 MCG DAILY
     Route: 048
  6. MAGNESIUM HYDROXIDE TAB [Concomitant]
     Indication: CONSTIPATION
     Dosage: 60 MG DAILY
     Route: 048
     Dates: start: 20080801

REACTIONS (8)
  - AMMONIA INCREASED [None]
  - ASPARTATE AMINOTRANSFERASE INCREASED [None]
  - BIOPSY LIVER [None]
  - BLOOD ALKALINE PHOSPHATASE INCREASED [None]
  - HEPATIC ENCEPHALOPATHY [None]
  - HEPATIC NECROSIS [None]
  - HEPATITIS [None]
  - NEUTROPHIL COUNT DECREASED [None]
